FAERS Safety Report 9119316 (Version 2)
Quarter: 2013Q1

REPORT INFORMATION
  Report Type: Spontaneous
  Country: US (occurrence: US)
  Receive Date: 20130207
  Receipt Date: 20130304
  Transmission Date: 20140127
  Serious: No
  Sender: FDA-Public Use
  Company Number: US-TEVA-381065USA

PATIENT
  Age: 17 Year
  Sex: Female
  Weight: 45.4 kg

DRUGS (1)
  1. PLAN B ONE-STEP [Suspect]
     Indication: POST COITAL CONTRACEPTION
     Dosage: 1.5 MILLIGRAM DAILY;
     Route: 048
     Dates: start: 20130106, end: 20130106

REACTIONS (5)
  - Hot flush [Recovered/Resolved]
  - Panic attack [Recovered/Resolved]
  - Pelvic pain [Recovered/Resolved]
  - Breast pain [Recovered/Resolved]
  - Metrorrhagia [Recovered/Resolved]
